FAERS Safety Report 6602687-1 (Version None)
Quarter: 2010Q1

REPORT INFORMATION
  Report Type: 
  Country: None (occurrence: None)
  Receive Date: 20100218
  Receipt Date: 20100127
  Transmission Date: 20100710
  Serious: Yes (Hospitalization)
  Sender: FDA-Public Use
  Company Number: 2009AC000258

PATIENT
  Age: 72 Year
  Sex: Male
  Weight: 116 kg

DRUGS (46)
  1. DIGOXIN [Suspect]
     Dosage: .125 MG; QD; PO
     Route: 048
     Dates: start: 20051201, end: 20080101
  2. DIGOXIN [Suspect]
     Dosage: .125 MG; PO
     Route: 048
     Dates: start: 20050901
  3. DIGOXIN [Suspect]
     Dosage: 125 MCG; PO
     Route: 048
     Dates: end: 20090624
  4. METFORMIN HYDROCHLORIDE [Concomitant]
  5. GLIPIZIDE [Concomitant]
  6. COREG [Concomitant]
  7. LASIX [Concomitant]
  8. METOLAZONE [Concomitant]
  9. BENAZEPRIL HYDROCHLORIDE [Concomitant]
  10. COUMADIN [Concomitant]
  11. LIPITOR [Concomitant]
  12. IMDUR [Concomitant]
  13. ALLOPURINOL [Concomitant]
  14. POTASSIUM CHLORIDE [Concomitant]
  15. ALDACTONE [Concomitant]
  16. CLIPIZIDE [Concomitant]
  17. VIAGRA [Concomitant]
  18. KLOR-CON [Concomitant]
  19. TOLVAPTAN [Concomitant]
  20. METOLAZONE [Concomitant]
  21. NITROGLYCERIN [Concomitant]
  22. FUROSEMIDE [Concomitant]
  23. LIPITOR [Concomitant]
  24. WARFARIN [Concomitant]
  25. METOLAZONE [Concomitant]
  26. BENAZEPRIL HYDROCHLORIDE [Concomitant]
  27. ALLOPURINOL [Concomitant]
  28. ISOSORBIDE [Concomitant]
  29. CARVEDILOL [Concomitant]
  30. INDERAL [Concomitant]
  31. NITROGLYCERIN [Concomitant]
  32. FUROSEMIDE [Concomitant]
  33. WARFARIN [Concomitant]
  34. GLIPIZIDE [Concomitant]
  35. COREG [Concomitant]
  36. LIPITOR [Concomitant]
  37. ISOSORBIDE [Concomitant]
  38. NIFEDIPINE [Concomitant]
  39. ALLOPURINOL [Concomitant]
  40. BENAZEPRIL HYDROCHLORIDE [Concomitant]
  41. GEMFIBROZIL [Concomitant]
  42. VIAGRA [Concomitant]
  43. SPIRONOLACTONE [Concomitant]
  44. LORAZEPAM [Concomitant]
  45. KLOR-CON [Concomitant]
  46. METOLAZONE [Concomitant]

REACTIONS (10)
  - CARDIAC FAILURE CONGESTIVE [None]
  - CONDITION AGGRAVATED [None]
  - DYSPNOEA [None]
  - ECONOMIC PROBLEM [None]
  - HYPOTENSION [None]
  - MULTIPLE INJURIES [None]
  - OEDEMA PERIPHERAL [None]
  - ORTHOPNOEA [None]
  - TREATMENT NONCOMPLIANCE [None]
  - WAIST CIRCUMFERENCE INCREASED [None]
